FAERS Safety Report 7754751-1 (Version None)
Quarter: 2011Q3

REPORT INFORMATION
  Report Type: 
  Country: None (occurrence: None)
  Receive Date: 20110916
  Receipt Date: 20110907
  Transmission Date: 20111222
  Serious: Yes (Other)
  Sender: FDA-Public Use
  Company Number: MA-BRISTOL-MYERS SQUIBB COMPANY-16058778

PATIENT
  Sex: Male

DRUGS (1)
  1. LYSODREN [Suspect]
     Indication: ADRENAL CARCINOMA
     Dosage: 1DF=2 BOXES/MONTH SINCE JAN/FEB,1BOX/MONTH SINCE OCT2010
     Dates: start: 20101001

REACTIONS (3)
  - OEDEMA PERIPHERAL [None]
  - RENAL IMPAIRMENT [None]
  - PROTEINURIA [None]
